FAERS Safety Report 7524776-X (Version None)
Quarter: 2011Q2

REPORT INFORMATION
  Report Type: 
  Country: None (occurrence: None)
  Receive Date: 20110606
  Receipt Date: 20110521
  Transmission Date: 20111010
  Serious: No
  Sender: FDA-Public Use
  Company Number: US-B.I. PHARMACEUTICALS,INC./RIDGEFIELD-2011-BP-13651BP

PATIENT
  Age: 87 Year
  Sex: Male

DRUGS (10)
  1. AVODART [Concomitant]
     Indication: PROSTATIC DISORDER
     Dosage: 0.5 MG
     Route: 048
     Dates: start: 20090101
  2. POTASSIUM CHLORIDE [Concomitant]
     Indication: CARDIAC FAILURE CONGESTIVE
     Dosage: 20 MEQ
     Route: 048
     Dates: start: 20100101
  3. SYNTHROID [Concomitant]
     Indication: HYPOTHYROIDISM
     Dosage: 75 MEQ
     Route: 048
     Dates: start: 20090101
  4. EXELON [Concomitant]
     Indication: DEPRESSION
     Route: 061
     Dates: start: 20090101
  5. BUPROPION HCL [Concomitant]
     Indication: DEPRESSION
     Dosage: 150 MG
     Route: 048
     Dates: start: 20100101
  6. PRADAXA [Suspect]
     Indication: ATRIAL FIBRILLATION
     Dosage: 300 MG
     Route: 048
     Dates: start: 20101101, end: 20110520
  7. SIMVASTATIN [Concomitant]
     Indication: BLOOD CHOLESTEROL
     Dosage: 30 MG
     Route: 048
     Dates: start: 20110501
  8. LASIX [Concomitant]
     Indication: CARDIAC FAILURE CONGESTIVE
     Dosage: 50 MG
     Route: 048
     Dates: start: 20090101
  9. HYDRALAZINE HCL [Concomitant]
     Indication: CARDIAC FAILURE CONGESTIVE
     Dosage: 20 MG
     Route: 048
     Dates: start: 20110301
  10. RANITIDINE [Concomitant]
     Indication: GASTROOESOPHAGEAL REFLUX DISEASE
     Dosage: 300 MG
     Route: 048
     Dates: start: 20090101

REACTIONS (3)
  - HAEMORRHAGE [None]
  - OEDEMA PERIPHERAL [None]
  - CONTUSION [None]
